FAERS Safety Report 9134365 (Version 1)
Quarter: 2013Q1

REPORT INFORMATION
  Report Type: Spontaneous
  Country: US (occurrence: US)
  Receive Date: 20130304
  Receipt Date: 20130304
  Transmission Date: 20140127
  Serious: No
  Sender: FDA-Public Use
  Company Number: US-JNJFOC-20130111827

PATIENT
  Age: 53 Year
  Sex: Female
  Weight: 85.28 kg

DRUGS (7)
  1. INVEGA SUSTENNA [Suspect]
     Indication: SCHIZOPHRENIA
     Route: 030
     Dates: start: 201108
  2. TRAMADOL [Concomitant]
     Route: 048
  3. TOPAMAX [Concomitant]
     Route: 048
  4. TYLENOL [Concomitant]
     Route: 048
  5. NORVASC [Concomitant]
     Route: 048
  6. COGENTIN [Concomitant]
     Route: 048
  7. ATIVAN [Concomitant]
     Route: 048

REACTIONS (1)
  - Injection site nodule [Unknown]
